FAERS Safety Report 20601939 (Version 1)
Quarter: 2022Q1

REPORT INFORMATION
  Report Type: Spontaneous
  Country: US (occurrence: US)
  Receive Date: 20220316
  Receipt Date: 20220316
  Transmission Date: 20220423
  Serious: No
  Sender: FDA-Public Use
  Company Number: US-SK LIFE SCIENCE, INC-SKPVG-2022-000006

PATIENT

DRUGS (1)
  1. XCOPRI [Suspect]
     Active Substance: CENOBAMATE
     Indication: Product used for unknown indication
     Dosage: 50MG IN THE AM AND 150MG IN THE PM
     Route: 065
     Dates: start: 20210123

REACTIONS (2)
  - Product dose omission issue [Not Recovered/Not Resolved]
  - Product prescribing issue [Recovered/Resolved]
